FAERS Safety Report 17731143 (Version 1)
Quarter: 2020Q2

REPORT INFORMATION
  Report Type: Report from Study
  Country: BR (occurrence: BR)
  Receive Date: 20200430
  Receipt Date: 20200430
  Transmission Date: 20200714
  Serious: Yes (Other)
  Sender: FDA-Public Use
  Company Number: NVSC2020BR082074

PATIENT
  Age: 64 Year
  Sex: Female

DRUGS (1)
  1. DIOVAN [Suspect]
     Active Substance: VALSARTAN
     Indication: BLOOD PRESSURE MEASUREMENT
     Dosage: 320 MG
     Route: 065

REACTIONS (18)
  - Chest pain [Unknown]
  - Speech disorder [Unknown]
  - Syncope [Unknown]
  - Headache [Not Recovered/Not Resolved]
  - Pain [Unknown]
  - Peripheral swelling [Unknown]
  - Infarction [Not Recovered/Not Resolved]
  - Vein disorder [Unknown]
  - Gait disturbance [Unknown]
  - Swelling [Unknown]
  - Memory impairment [Unknown]
  - Cardiac discomfort [Unknown]
  - Malaise [Unknown]
  - Cerebrovascular accident [Unknown]
  - Dyspnoea [Unknown]
  - Swelling face [Unknown]
  - Head discomfort [Unknown]
  - Drug ineffective [Not Recovered/Not Resolved]

NARRATIVE: CASE EVENT DATE: 201907
